FAERS Safety Report 8936878 (Version 1)
Quarter: 2012Q4

REPORT INFORMATION
  Report Type: 
  Country: GB (occurrence: GB)
  Receive Date: 20121130
  Receipt Date: 20121130
  Transmission Date: 20130627
  Serious: Yes (Hospitalization)
  Sender: FDA-Public Use
  Company Number: PHFR2012GB006227

PATIENT
  Sex: Female

DRUGS (7)
  1. CLOZARIL [Suspect]
     Indication: SCHIZOPHRENIA
     Dosage: UNK
     Dates: start: 201204
  2. CLOZARIL [Suspect]
     Dosage: UNK
     Dates: start: 20120821
  3. CLOZARIL [Suspect]
     Dosage: 25 mg, UNK
     Dates: start: 20120822
  4. CLOZARIL [Suspect]
     Dosage: UNK UKN, UNK
  5. DOMPERIDONE [Concomitant]
     Dosage: 30 mg, UNK
     Route: 048
  6. CO-CARELDOPA [Concomitant]
     Indication: PARKINSON^S DISEASE
     Dosage: 625 mg, UNK
  7. DIAZEPAM [Concomitant]
     Indication: PARKINSON^S DISEASE
     Dosage: 6 mg, UNK

REACTIONS (2)
  - Dehydration [Recovered/Resolved]
  - Sepsis [Recovered/Resolved]
